FAERS Safety Report 7110056-3 (Version None)
Quarter: 2010Q4

REPORT INFORMATION
  Report Type: 
  Country: None (occurrence: None)
  Receive Date: 20101116
  Receipt Date: 20101116
  Transmission Date: 20110411
  Serious: Yes (Life-Threatening)
  Sender: FDA-Public Use
  Company Number: None

PATIENT
  Sex: Female
  Weight: 12.4 kg

DRUGS (20)
  1. PRISMASOL BK 0/0/1.2 [Suspect]
     Indication: FLUID OVERLOAD
     Dosage: 2000ML/HR CRRT DIALVAATE ; 100ML/HR CRRTREPLACEMENT
     Dates: start: 20100805, end: 20100806
  2. ALBUMIN (HUMAN) [Concomitant]
  3. BUDESONIDE NEB [Concomitant]
  4. CETIRIZINE HCL [Concomitant]
  5. CHLOROTHIAZIDE [Concomitant]
  6. LEVOFLOXACIN [Concomitant]
  7. LINEZOLID [Concomitant]
  8. MEROPENUM [Concomitant]
  9. PROBENECID [Concomitant]
  10. VECURONIUM BROMIDE [Concomitant]
  11. VORICONAZOLE [Concomitant]
  12. CALCIUM CHLORIDE [Concomitant]
  13. FENTANYL [Concomitant]
  14. HEPARIN [Concomitant]
  15. ANTICOAG CITRATE DEXTROSE [Concomitant]
  16. EPINEPHRINE [Concomitant]
  17. SODIUM CHLORIDE [Concomitant]
  18. FUROSEMIDE [Concomitant]
  19. MIDAZOLAM HCL [Concomitant]
  20. NOREPINEPHRINE [Concomitant]

REACTIONS (4)
  - ACIDOSIS [None]
  - BLOOD LACTIC ACID INCREASED [None]
  - HEPATIC ENZYME INCREASED [None]
  - HYPOTENSION [None]
